FAERS Safety Report 8353416-5 (Version None)
Quarter: 2012Q2

REPORT INFORMATION
  Report Type: 
  Country: None (occurrence: None)
  Receive Date: 20120511
  Receipt Date: 20111118
  Transmission Date: 20120825
  Serious: No
  Sender: FDA-Public Use
  Company Number: US-GLAXOSMITHKLINE-A0772094A

PATIENT
  Age: 56 Year
  Sex: Female

DRUGS (7)
  1. COUMADIN [Concomitant]
  2. ALTACE [Concomitant]
  3. BONIVA [Concomitant]
  4. ZANTAC [Concomitant]
  5. TYKERB [Suspect]
     Indication: BREAST CANCER
     Dosage: 750MG THREE TIMES PER DAY
     Route: 048
     Dates: start: 20090227
  6. CALCIUM CARBONATE [Concomitant]
  7. XELODA [Concomitant]

REACTIONS (5)
  - SOMNOLENCE [None]
  - CARDIAC FUNCTION TEST ABNORMAL [None]
  - FATIGUE [None]
  - NAUSEA [None]
  - DYSPEPSIA [None]
